FAERS Safety Report 6173829-X (Version None)
Quarter: 2009Q2

REPORT INFORMATION
  Report Type: 
  Country: None (occurrence: None)
  Receive Date: 20090429
  Receipt Date: 20090429
  Transmission Date: 20091009
  Serious: Yes (Hospitalization)
  Sender: FDA-Public Use
  Company Number: None

PATIENT
  Sex: Female

DRUGS (2)
  1. PROACTIVE LOTION 2.5% BPO GUTHY-RENKER LLC [Suspect]
     Indication: ACNE
     Dosage: 060 PER LABEL TOP
     Route: 061
     Dates: start: 20080701, end: 20080901
  2. PROACTIV CLEANSER 2.5% BPO GUTHY-RENKER LLC [Suspect]
     Indication: ACNE
     Dosage: PER LABEL TOP
     Route: 061

REACTIONS (1)
  - DISORIENTATION [None]
